FAERS Safety Report 7997540-5 (Version None)
Quarter: 2011Q4

REPORT INFORMATION
  Report Type: 
  Country: None (occurrence: None)
  Receive Date: 20111221
  Receipt Date: 20111219
  Transmission Date: 20120403
  Serious: Yes (Death)
  Sender: FDA-Public Use
  Company Number: US-PFIZER INC-2011308635

PATIENT
  Age: 25 Year
  Sex: Male

DRUGS (5)
  1. ACETAMINOPHEN [Suspect]
  2. OXYMORPHONE [Suspect]
  3. OXYCODONE HCL [Suspect]
  4. KETOROLAC TROMETHAMINE [Suspect]
  5. ZOLPIDEM [Suspect]

REACTIONS (4)
  - INTENTIONAL DRUG MISUSE [None]
  - CARDIAC ARREST [None]
  - COMPLETED SUICIDE [None]
  - RESPIRATORY ARREST [None]
